FAERS Safety Report 9077612 (Version 1)
Quarter: 2013Q1

REPORT INFORMATION
  Report Type: Report from Study
  Country: US (occurrence: US)
  Receive Date: 20130130
  Receipt Date: 20130130
  Transmission Date: 20140127
  Serious: No
  Sender: FDA-Public Use
  Company Number: US-ABBOTT-12P-163-0954355-00

PATIENT
  Sex: Female
  Weight: 120.31 kg

DRUGS (2)
  1. HUMIRA 40 MG/ 0.8 ML PRE-FILLED SYRINGE [Suspect]
     Indication: PSORIASIS
     Dates: start: 2010
  2. HUMIRA 40 MG/ 0.8 ML PRE-FILLED SYRINGE [Suspect]

REACTIONS (5)
  - Respiratory tract congestion [Unknown]
  - Sputum discoloured [Unknown]
  - Cough [Unknown]
  - Cough [Unknown]
  - Respiratory tract congestion [Unknown]
